FAERS Safety Report 14148729 (Version 2)
Quarter: 2017Q4

REPORT INFORMATION
  Report Type: Report from Study
  Country: None (occurrence: US)
  Receive Date: 20171101
  Receipt Date: 20171109
  Transmission Date: 20180321
  Serious: Yes (Other)
  Sender: FDA-Public Use
  Company Number: US-ABBVIE-17K-163-2143973-00

PATIENT
  Age: 72 Year
  Sex: Female
  Weight: 63.56 kg

DRUGS (1)
  1. HUMIRA [Suspect]
     Active Substance: ADALIMUMAB
     Indication: COLITIS ULCERATIVE
     Route: 058
     Dates: start: 201601

REACTIONS (2)
  - Haematochezia [Recovered/Resolved]
  - Gastrointestinal polyp haemorrhage [Recovered/Resolved]

NARRATIVE: CASE EVENT DATE: 201707
